FAERS Safety Report 8367281-3 (Version None)
Quarter: 2012Q2

REPORT INFORMATION
  Report Type: 
  Country: None (occurrence: None)
  Receive Date: 20120517
  Receipt Date: 20120508
  Transmission Date: 20120825
  Serious: Yes (Hospitalization)
  Sender: FDA-Public Use
  Company Number: US-BRISTOL-MYERS SQUIBB COMPANY-16581738

PATIENT
  Age: 44 Year
  Sex: Female
  Weight: 68 kg

DRUGS (4)
  1. TRACLEER [Suspect]
  2. TREPROSTINIL [Suspect]
     Indication: PULMONARY ARTERIAL HYPERTENSION
     Dosage: 1 DOSAGE FORM = 44.8 NG/KG/MIN STRENGTH:5MG/ML TREPROSTINIL INJ FOR INF
     Route: 058
     Dates: start: 20080801
  3. REVATIO [Suspect]
  4. COUMADIN [Suspect]

REACTIONS (1)
  - PNEUMONIA [None]
